FAERS Safety Report 5780936-X (Version None)
Quarter: 2008Q2

REPORT INFORMATION
  Report Type: 
  Country: None (occurrence: None)
  Receive Date: 20080620
  Receipt Date: 20080610
  Transmission Date: 20081010
  Serious: Yes (Hospitalization)
  Sender: FDA-Public Use
  Company Number: AR-PFIZER INC-2008047889

PATIENT
  Sex: Female
  Weight: 59 kg

DRUGS (6)
  1. EXEMESTANE [Suspect]
     Indication: BREAST CANCER
     Route: 048
     Dates: start: 20080327, end: 20080607
  2. LEVOTHYROXINE SODIUM [Concomitant]
     Route: 048
  3. ALPRAZOLAM [Concomitant]
     Route: 048
  4. FLUOXETINE [Concomitant]
     Route: 048
  5. SALMETEROL [Concomitant]
     Route: 055
  6. FLUTICASONE PROPIONATE [Concomitant]
     Route: 055
     Dates: start: 20080404

REACTIONS (2)
  - CHEST PAIN [None]
  - PYREXIA [None]
